FAERS Safety Report 15496564 (Version 1)
Quarter: 2018Q4

REPORT INFORMATION
  Report Type: Spontaneous
  Country: US (occurrence: US)
  Receive Date: 20181013
  Receipt Date: 20181013
  Transmission Date: 20190205
  Serious: Yes (Other)
  Sender: FDA-Public Use
  Company Number: US-TEVA-2018-US-961502

PATIENT
  Sex: Female

DRUGS (2)
  1. QVAR [Suspect]
     Active Substance: BECLOMETHASONE DIPROPIONATE
     Indication: PRODUCT USED FOR UNKNOWN INDICATION
     Dosage: 2 PUFFS TWICE DAILY
     Route: 065
     Dates: end: 201810
  2. QVAR [Suspect]
     Active Substance: BECLOMETHASONE DIPROPIONATE
     Dosage: 1 PUFFS TWICE DAILY
     Route: 065
     Dates: end: 201810

REACTIONS (3)
  - Respiratory tract infection [Recovered/Resolved]
  - Dysphonia [Unknown]
  - Vocal cord disorder [Unknown]

NARRATIVE: CASE EVENT DATE: 2018
